FAERS Safety Report 7228016-0 (Version None)
Quarter: 2011Q1

REPORT INFORMATION
  Report Type: 
  Country: None (occurrence: None)
  Receive Date: 20110114
  Receipt Date: 20100111
  Transmission Date: 20110831
  Serious: Yes (Death, Other)
  Sender: FDA-Public Use
  Company Number: FR-PFIZER INC-2009284419

PATIENT
  Age: 45 Year
  Sex: Male

DRUGS (17)
  1. INIPOMP [Concomitant]
  2. DIHYDROCODEINE [Concomitant]
     Dosage: UNK
     Dates: end: 20090316
  3. VITABACT [Concomitant]
  4. HELICIDINE [Concomitant]
  5. ATARAX [Suspect]
     Dosage: UNK
     Route: 048
     Dates: end: 20090316
  6. RIVOTRIL [Concomitant]
     Dosage: UNK
     Dates: end: 20090316
  7. CODEINE [Concomitant]
  8. CIALIS [Concomitant]
  9. METHOCARBAMOL [Concomitant]
  10. LOPERAMIDE HCL [Concomitant]
  11. VOGALENE [Concomitant]
  12. EUROBIOL [Concomitant]
  13. SPASFON [Concomitant]
  14. ESCITALOPRAM OXALATE [Concomitant]
     Dosage: UNK
     Dates: end: 20090316
  15. PHOLCODINE [Suspect]
     Dosage: UNK
     Dates: end: 20090316
  16. SERESTA [Concomitant]
  17. LEXOMIL [Concomitant]

REACTIONS (3)
  - RESPIRATORY DEPRESSION [None]
  - TOXICITY TO VARIOUS AGENTS [None]
  - DRUG ABUSE [None]
